FAERS Safety Report 5496098-2 (Version None)
Quarter: 2007Q4

REPORT INFORMATION
  Report Type: 
  Country: None (occurrence: None)
  Receive Date: 20071025
  Receipt Date: 20070124
  Transmission Date: 20080405
  Serious: No
  Sender: FDA-Public Use
  Company Number: A0636861A

PATIENT
  Sex: Female

DRUGS (7)
  1. ADVAIR DISKUS 100/50 [Suspect]
     Route: 055
     Dates: start: 20070116
  2. NEXIUM [Concomitant]
  3. CARAFATE [Concomitant]
  4. UNKNOWN MEDICATION [Concomitant]
  5. LEVOTHYROXINE SODIUM [Concomitant]
  6. METRONIDAZOLE [Concomitant]
  7. IPRATROPIUM BROMIDE [Concomitant]
     Route: 045

REACTIONS (1)
  - DRUG INEFFECTIVE [None]
